FAERS Safety Report 8786294 (Version 2)
Quarter: 2012Q4

REPORT INFORMATION
  Report Type: 
  Country: US (occurrence: US)
  Receive Date: 20120914
  Receipt Date: 20120924
  Transmission Date: 20130627
  Serious: Yes (Other)
  Sender: FDA-Public Use
  Company Number: US-PFIZER INC-2012224806

PATIENT
  Age: 66 Year
  Sex: Female
  Weight: 79.82 kg

DRUGS (3)
  1. EFFEXOR XR [Suspect]
     Indication: DEPRESSION
     Dosage: 37.5 mg, 1x/day
     Route: 048
  2. EFFEXOR XR [Suspect]
     Indication: FIBROMYALGIA
     Dosage: 75 mg, UNK
     Route: 048
  3. EFFEXOR XR [Suspect]
     Indication: ATTENTION DEFICIT/HYPERACTIVITY DISORDER
     Dosage: 37.5 mg, 1x/day
     Route: 048

REACTIONS (14)
  - Road traffic accident [Unknown]
  - Off label use [Unknown]
  - Fibromyalgia [Unknown]
  - Therapeutic response unexpected [Unknown]
  - Off label use [Unknown]
  - Attention deficit/hyperactivity disorder [Unknown]
  - Therapeutic response unexpected [Unknown]
  - Thinking abnormal [Unknown]
  - Therapeutic response unexpected [Unknown]
  - Drug effect incomplete [Recovering/Resolving]
  - Feeling abnormal [Unknown]
  - Pain [Unknown]
  - Fibromyalgia [Unknown]
  - Anxiety [Recovering/Resolving]
